FAERS Safety Report 9968762 (Version 1)
Quarter: 2014Q1

REPORT INFORMATION
  Report Type: Report from Study
  Country: US (occurrence: US)
  Receive Date: 20140306
  Receipt Date: 20140306
  Transmission Date: 20141002
  Serious: No
  Sender: FDA-Public Use
  Company Number: US-ABBVIE-13P-163-1143987-00

PATIENT
  Age: 71 Year
  Sex: Male
  Weight: 93.07 kg

DRUGS (5)
  1. HUMIRA [Suspect]
     Indication: PSORIASIS
     Dates: start: 201210, end: 201210
  2. HUMIRA [Suspect]
     Dates: start: 201210, end: 20130614
  3. LOSARTIN [Concomitant]
     Indication: BLOOD PRESSURE
  4. FINASTERIDE [Concomitant]
     Indication: PROSTATIC SPECIFIC ANTIGEN INCREASED
  5. TAMSULOSIN [Concomitant]
     Indication: PROSTATIC SPECIFIC ANTIGEN INCREASED

REACTIONS (4)
  - Pruritus [Not Recovered/Not Resolved]
  - Rash [Not Recovered/Not Resolved]
  - Injection site swelling [Recovered/Resolved]
  - Injection site erythema [Recovered/Resolved]
